FAERS Safety Report 15867437 (Version 1)
Quarter: 2019Q1

REPORT INFORMATION
  Report Type: Spontaneous
  Country: US (occurrence: US)
  Receive Date: 20190102
  Receipt Date: 20190102
  Transmission Date: 20190417
  Serious: Yes (Life-Threatening)
  Sender: FDA-Public Use
  Company Number: None

PATIENT
  Age: 73 Year
  Sex: Male
  Weight: 98 kg

DRUGS (15)
  1. DEXAMETHASONE. [Concomitant]
     Active Substance: DEXAMETHASONE
  2. DIAZEPAM. [Concomitant]
     Active Substance: DIAZEPAM
  3. DOCUSATE SODIUM. [Concomitant]
     Active Substance: DOCUSATE SODIUM
  4. DARATUMUMAB (100MG/5ML) [Suspect]
     Active Substance: DARATUMUMAB
     Indication: AMYLOIDOSIS
     Dosage: DARATUMUAB 1700 MG, WEEKLY X 8 WEEKS, INTRAVENOUS
     Route: 042
     Dates: start: 20181003, end: 20181115
  5. DARATUMUMAB (400MG/20ML) [Suspect]
     Active Substance: DARATUMUMAB
  6. DULCOLAX NOS [Concomitant]
     Active Substance: BISACODYL OR DOCUSATE SODIUM
  7. TORSEMIDE. [Concomitant]
     Active Substance: TORSEMIDE
  8. VITAMIN D3 [Concomitant]
     Active Substance: CHOLECALCIFEROL
  9. DARATUMUMAB (100MG/5ML) [Suspect]
     Active Substance: DARATUMUMAB
     Indication: LIGHT CHAIN DISEASE
     Dosage: DARATUMUAB 1700 MG, WEEKLY X 8 WEEKS, INTRAVENOUS
     Route: 042
     Dates: start: 20181003, end: 20181115
  10. HYDROCODONE BITARTRATE AND ACETAMINOPHEN [Concomitant]
     Active Substance: ACETAMINOPHEN\HYDROCODONE BITARTRATE
  11. MIDODRINE [Concomitant]
     Active Substance: MIDODRINE
  12. MIRALAX [Concomitant]
     Active Substance: POLYETHYLENE GLYCOL 3350
  13. MONTELUKAST [Concomitant]
     Active Substance: MONTELUKAST SODIUM
  14. ACYCLOVIR. [Concomitant]
     Active Substance: ACYCLOVIR
  15. LYRICA [Concomitant]
     Active Substance: PREGABALIN

REACTIONS (5)
  - Upper gastrointestinal haemorrhage [None]
  - Lung consolidation [None]
  - Acute respiratory failure [None]
  - Thrombocytopenia [None]
  - Pleural effusion [None]

NARRATIVE: CASE EVENT DATE: 20181128
